FAERS Safety Report 9594701 (Version 2)
Quarter: 2013Q4

REPORT INFORMATION
  Report Type: Spontaneous
  Country: US (occurrence: US)
  Receive Date: 20131004
  Receipt Date: 20131004
  Transmission Date: 20140711
  Serious: No
  Sender: FDA-Public Use
  Company Number: US-PURDUE-USA-2012-0091493

PATIENT
  Sex: Female

DRUGS (1)
  1. BUTRANS [Suspect]
     Indication: PAIN
     Dosage: 20 MCG/HR, UNK
     Route: 062
     Dates: start: 201202, end: 201207

REACTIONS (5)
  - Drug ineffective [Recovered/Resolved]
  - Application site urticaria [Recovered/Resolved]
  - Application site perspiration [Recovered/Resolved]
  - Product adhesion issue [Recovered/Resolved]
  - Urticaria [Recovered/Resolved]
